FAERS Safety Report 14505166 (Version 1)
Quarter: 2018Q1

REPORT INFORMATION
  Report Type: Spontaneous
  Country: US (occurrence: US)
  Receive Date: 20180208
  Receipt Date: 20180208
  Transmission Date: 20180509
  Serious: Yes (Death)
  Sender: FDA-Public Use
  Company Number: US-PFIZER INC-3160378

PATIENT
  Age: 87 Year
  Sex: Female

DRUGS (4)
  1. DILTIAZEM. [Suspect]
     Active Substance: DILTIAZEM
     Dosage: UNK
     Route: 048
     Dates: start: 20140101, end: 20140101
  2. DILTIAZEM HCL [Suspect]
     Active Substance: DILTIAZEM HYDROCHLORIDE
     Dosage: UNK
     Route: 051
     Dates: start: 20140101, end: 20140101
  3. NITROGLYCERIN. [Suspect]
     Active Substance: NITROGLYCERIN
     Dosage: UNK
     Route: 051
     Dates: start: 20140101, end: 20140101
  4. CARVEDILOL. [Suspect]
     Active Substance: CARVEDILOL
     Dosage: UNK
     Dates: start: 20140101, end: 20140101

REACTIONS (2)
  - Medication error [Fatal]
  - Toxicity to various agents [Fatal]

NARRATIVE: CASE EVENT DATE: 20140101
